FAERS Safety Report 15983574 (Version 1)
Quarter: 2019Q1

REPORT INFORMATION
  Report Type: Spontaneous
  Country: US (occurrence: US)
  Receive Date: 20190220
  Receipt Date: 20190220
  Transmission Date: 20190418
  Serious: No
  Sender: FDA-Public Use
  Company Number: US-009507513-1902USA006470

PATIENT
  Sex: Female

DRUGS (1)
  1. CELESTONE SOLUSPAN [Suspect]
     Active Substance: BETAMETHASONE ACETATE\BETAMETHASONE SODIUM PHOSPHATE
     Dosage: 12 MILLIGRAM, UNK
     Route: 030
     Dates: start: 20190214

REACTIONS (2)
  - Exposure during pregnancy [Unknown]
  - No adverse event [Unknown]

NARRATIVE: CASE EVENT DATE: 20190214
